FAERS Safety Report 5401159-X (Version None)
Quarter: 2007Q3

REPORT INFORMATION
  Report Type: 
  Country: None (occurrence: None)
  Receive Date: 20070731
  Receipt Date: 20070727
  Transmission Date: 20080115
  Serious: Yes (Other)
  Sender: FDA-Public Use
  Company Number: PHNU2007DE02257

PATIENT
  Sex: Male

DRUGS (4)
  1. DIOVAN HCT [Suspect]
     Indication: HYPERTENSION
     Route: 048
     Dates: start: 20060101
  2. MOXONIDINE [Concomitant]
  3. BETA BLOCKING AGENTS [Concomitant]
  4. CONTRAST MEDIA [Suspect]

REACTIONS (5)
  - BLOOD CREATININE INCREASED [None]
  - BLOOD UREA INCREASED [None]
  - CAROTID ARTERY STENT INSERTION [None]
  - RENAL FAILURE [None]
  - URINARY TRACT INFECTION [None]
